FAERS Safety Report 16279253 (Version 3)
Quarter: 2019Q2

REPORT INFORMATION
  Report Type: Spontaneous
  Country: TN (occurrence: TN)
  Receive Date: 20190506
  Receipt Date: 20190527
  Transmission Date: 20190711
  Serious: Yes (Life-Threatening)
  Sender: FDA-Public Use
  Company Number: TN-CELLTRION INC.-2019TN020878

PATIENT

DRUGS (2)
  1. HYDROCORTISONE HEMISUCCINATE [Concomitant]
     Active Substance: HYDROCORTISONE HEMISUCCINATE
     Indication: PREMEDICATION
     Dosage: 100 MG, 20 MINUTES BEFORE THE INFUSION
     Route: 042
  2. REMSIMA [Suspect]
     Active Substance: INFLIXIMAB
     Indication: CROHN^S DISEASE
     Dosage: 10 MG/KG ( 10 VIALS EVERY 4 WEEKS)
     Route: 042
     Dates: start: 20180301, end: 20190406

REACTIONS (7)
  - Hot flush [Recovering/Resolving]
  - Face oedema [Recovered/Resolved]
  - Urticaria [Recovered/Resolved]
  - Hypertension [Recovering/Resolving]
  - Overdose [Unknown]
  - Tachycardia [Recovering/Resolving]
  - Dyspnoea [Recovered/Resolved]

NARRATIVE: CASE EVENT DATE: 20190420
